FAERS Safety Report 20057120 (Version 1)
Quarter: 2021Q4

REPORT INFORMATION
  Report Type: Spontaneous
  Country: GB (occurrence: GB)
  Receive Date: 20211111
  Receipt Date: 20211111
  Transmission Date: 20220303
  Serious: Yes (Other)
  Sender: FDA-Public Use
  Company Number: None

PATIENT
  Age: 27 Year
  Sex: Female
  Weight: 62 kg

DRUGS (4)
  1. ONDANSETRON [Suspect]
     Active Substance: ONDANSETRON
     Indication: Anaesthesia
     Dosage: 4MG
     Route: 065
     Dates: start: 20211031, end: 20211031
  2. AMOXICILLIN\CLAVULANATE POTASSIUM [Suspect]
     Active Substance: AMOXICILLIN\CLAVULANATE POTASSIUM
     Indication: Anaesthesia
     Dosage: 1.2GRAM
     Route: 065
     Dates: start: 20211031, end: 20211031
  3. CHLORHEXIDINE [Suspect]
     Active Substance: CHLORHEXIDINE
     Indication: Anaesthesia
     Route: 065
     Dates: start: 20211031, end: 20211031
  4. BUPIVACAINE [Suspect]
     Active Substance: BUPIVACAINE
     Indication: Anaesthesia
     Dosage: 2.3ML
     Route: 065
     Dates: start: 20211031, end: 20211031

REACTIONS (3)
  - Hypersensitivity [Recovered/Resolved]
  - Bradycardia [Unknown]
  - Rash erythematous [Unknown]

NARRATIVE: CASE EVENT DATE: 20211031
